FAERS Safety Report 10703673 (Version 2)
Quarter: 2016Q1

REPORT INFORMATION
  Report Type: Report from Study
  Country: US (occurrence: US)
  Receive Date: 20150112
  Receipt Date: 20160210
  Transmission Date: 20160525
  Serious: Yes (Other)
  Sender: FDA-Public Use
  Company Number: US-AMGEN-USASP2015000436

PATIENT
  Age: 65 Year
  Sex: Female

DRUGS (5)
  1. METHOTREXATE (METHOTREXATE SODIUM) [Concomitant]
     Active Substance: METHOTREXATE SODIUM
  2. ENBREL [Suspect]
     Active Substance: ETANERCEPT
     Indication: RHEUMATOID ARTHRITIS
     Dosage: 50 MG, QWK
     Route: 065
     Dates: start: 20130207
  3. ENBREL [Suspect]
     Active Substance: ETANERCEPT
     Dosage: UNK
     Route: 065
  4. PLAQUENIL [Concomitant]
     Active Substance: HYDROXYCHLOROQUINE SULFATE
     Dosage: UNK
  5. HYDROXYCHLOROQUINE [Concomitant]
     Active Substance: HYDROXYCHLOROQUINE
     Indication: SYSTEMIC LUPUS ERYTHEMATOSUS
     Dosage: UNK

REACTIONS (27)
  - Burning sensation [Not Recovered/Not Resolved]
  - Neck pain [Not Recovered/Not Resolved]
  - Cough [Unknown]
  - Gait disturbance [Not Recovered/Not Resolved]
  - Ulcer haemorrhage [Unknown]
  - Sciatica [Not Recovered/Not Resolved]
  - Retching [Not Recovered/Not Resolved]
  - Intentional product misuse [Unknown]
  - Weight decreased [Unknown]
  - Bone disorder [Not Recovered/Not Resolved]
  - Stress [Not Recovered/Not Resolved]
  - Pain in extremity [Unknown]
  - Meniscus injury [Unknown]
  - Joint swelling [Unknown]
  - Pain [Unknown]
  - Feeling cold [Unknown]
  - Asthenia [Unknown]
  - Musculoskeletal pain [Not Recovered/Not Resolved]
  - Gastrooesophageal reflux disease [Not Recovered/Not Resolved]
  - Mobility decreased [Unknown]
  - Chills [Unknown]
  - Sinus disorder [Unknown]
  - Arthralgia [Unknown]
  - Oropharyngeal pain [Recovered/Resolved]
  - Chest pain [Not Recovered/Not Resolved]
  - Tenderness [Not Recovered/Not Resolved]
  - Dysphagia [Not Recovered/Not Resolved]

NARRATIVE: CASE EVENT DATE: 2014
